FAERS Safety Report 4852825-6 (Version None)
Quarter: 2005Q4

REPORT INFORMATION
  Report Type: 
  Country: None (occurrence: None)
  Receive Date: 20051212
  Receipt Date: 20051212
  Transmission Date: 20060501
  Serious: No
  Sender: FDA-Public Use
  Company Number: None

PATIENT
  Sex: Female
  Weight: 49.8957 kg

DRUGS (1)
  1. ZICAM LIQUID NASAL COLD REMEDY [Suspect]
     Indication: NASOPHARYNGITIS
     Dosage: 1 SPRAY EACH NOSTRIL  NASAL   ONE TIME
     Route: 045
     Dates: start: 20050101, end: 20051207

REACTIONS (2)
  - ANOSMIA [None]
  - HYPOGEUSIA [None]
